FAERS Safety Report 5365029-8 (Version None)
Quarter: 2007Q2

REPORT INFORMATION
  Report Type: 
  Country: None (occurrence: None)
  Receive Date: 20070621
  Receipt Date: 20070611
  Transmission Date: 20071010
  Serious: Yes (Hospitalization)
  Sender: FDA-Public Use
  Company Number: US-JNJFOC-20070602956

PATIENT
  Sex: Female

DRUGS (5)
  1. TOPAMAX [Suspect]
     Route: 048
  2. TOPAMAX [Suspect]
     Indication: EPILEPSY
     Route: 048
  3. DEPAKOTE [Concomitant]
     Indication: MOVEMENT DISORDER
  4. NORTREL 7/7/7 [Concomitant]
     Indication: MENSTRUAL CYCLE MANAGEMENT
     Route: 048
  5. PHENOBARBITAL TAB [Concomitant]
     Indication: EPILEPSY

REACTIONS (5)
  - AGITATION [None]
  - CONVULSION [None]
  - OCULAR HYPERAEMIA [None]
  - PLATELET COUNT DECREASED [None]
  - STATUS EPILEPTICUS [None]
